FAERS Safety Report 6620926-8 (Version None)
Quarter: 2010Q1

REPORT INFORMATION
  Report Type: 
  Country: None (occurrence: None)
  Receive Date: 20100309
  Receipt Date: 20100225
  Transmission Date: 20100710
  Serious: Yes (Other)
  Sender: FDA-Public Use
  Company Number: CA-PFIZER INC-2010025180

PATIENT
  Age: 61 Year
  Sex: Female

DRUGS (3)
  1. CHAMPIX [Suspect]
     Dosage: UNK
     Dates: start: 20100222
  2. ASPIRIN [Concomitant]
     Dosage: LOW DOSE
  3. PARIET [Concomitant]
     Dosage: UNK

REACTIONS (1)
  - FAECES DISCOLOURED [None]
